FAERS Safety Report 10997005 (Version 1)
Quarter: 2015Q2

REPORT INFORMATION
  Report Type: Spontaneous
  Country: US (occurrence: None)
  Receive Date: 20150407
  Receipt Date: 20150407
  Transmission Date: 20150821
  Serious: No
  Sender: FDA-Public Use
  Company Number: None

PATIENT
  Age: 65 Year
  Sex: Male
  Weight: 87.09 kg

DRUGS (7)
  1. LIPITOR [Concomitant]
     Active Substance: ATORVASTATIN CALCIUM
  2. VITAMIN D [Suspect]
     Active Substance: CHOLECALCIFEROL
  3. ATELVIA [Suspect]
     Active Substance: RISEDRONATE SODIUM
     Indication: OSTEOPOROSIS
     Route: 048
     Dates: start: 20150323
  4. FISH OIL [Suspect]
     Active Substance: FISH OIL
  5. ASPIRIN. [Suspect]
     Active Substance: ASPIRIN
  6. PAXIL [Concomitant]
     Active Substance: PAROXETINE HYDROCHLORIDE
  7. CITRACAL [Suspect]
     Active Substance: CALCIUM CITRATE

REACTIONS (8)
  - Pain [None]
  - Muscular weakness [None]
  - Feeling cold [None]
  - Malaise [None]
  - Gait disturbance [None]
  - Body temperature increased [None]
  - Flank pain [None]
  - Feeling hot [None]

NARRATIVE: CASE EVENT DATE: 20150323
